FAERS Safety Report 15333450 (Version 3)
Quarter: 2018Q4

REPORT INFORMATION
  Report Type: Spontaneous
  Country: US (occurrence: US)
  Receive Date: 20180830
  Receipt Date: 20181217
  Transmission Date: 20190204
  Serious: Yes (Death, Hospitalization)
  Sender: FDA-Public Use
  Company Number: US-ACORDA-ACO_152918_2018

PATIENT
  Age: 65 Year
  Sex: Female

DRUGS (1)
  1. AMPYRA [Suspect]
     Active Substance: DALFAMPRIDINE
     Indication: MULTIPLE SCLEROSIS
     Dosage: 10 MG, Q 12 HRS (BID)
     Route: 048
     Dates: start: 20161026

REACTIONS (5)
  - Blood sodium decreased [Recovered/Resolved]
  - Pneumonia [Recovered/Resolved]
  - Thrombosis [Unknown]
  - Therapy cessation [Unknown]
  - Death [Fatal]

NARRATIVE: CASE EVENT DATE: 201807
